FAERS Safety Report 9064523 (Version 1)
Quarter: 2013Q1

REPORT INFORMATION
  Report Type: Spontaneous
  Country: US (occurrence: US)
  Receive Date: 20130130
  Receipt Date: 20130130
  Transmission Date: 20140127
  Serious: Yes (Hospitalization, Other)
  Sender: FDA-Public Use
  Company Number: US-VERTEX PHARMACEUTICALS INC.-2013-001132

PATIENT
  Age: 65 Year
  Sex: Male

DRUGS (4)
  1. INCIVEK [Suspect]
     Indication: HEPATITIS C
     Dosage: 750 MG, TID
     Route: 048
     Dates: start: 20120717, end: 20121004
  2. RIBAPAK [Suspect]
     Indication: HEPATITIS C
     Dosage: 1200 MG, QD
     Route: 048
     Dates: start: 20120717, end: 201212
  3. RIBAPAK [Suspect]
     Dosage: 400 MG, QD
     Dates: start: 201210, end: 20121218
  4. PEGASYS [Suspect]
     Indication: HEPATITIS C
     Dosage: 180 ?G, QW
     Route: 058
     Dates: start: 20120717, end: 20121218

REACTIONS (5)
  - Anaemia [Not Recovered/Not Resolved]
  - Rash generalised [Not Recovered/Not Resolved]
  - Nail disorder [Not Recovered/Not Resolved]
  - Skin wrinkling [Not Recovered/Not Resolved]
  - Skin exfoliation [Not Recovered/Not Resolved]
